FAERS Safety Report 5188165-8 (Version None)
Quarter: 2006Q4

REPORT INFORMATION
  Report Type: 
  Country: None (occurrence: None)
  Receive Date: 20061221
  Receipt Date: 20061211
  Transmission Date: 20070319
  Serious: Yes (Hospitalization)
  Sender: FDA-Public Use
  Company Number: 2006CG02021

PATIENT
  Age: 24431 Day
  Sex: Male

DRUGS (4)
  1. NEXIUM [Suspect]
     Route: 048
     Dates: start: 20061113, end: 20061119
  2. PREVISCAN [Suspect]
     Route: 048
     Dates: start: 20061116, end: 20061119
  3. ASPIRIN [Concomitant]
     Route: 048
     Dates: start: 20061114
  4. LORAZEPAM [Concomitant]
     Dates: start: 20061115

REACTIONS (4)
  - ALANINE AMINOTRANSFERASE INCREASED [None]
  - ASPARTATE AMINOTRANSFERASE INCREASED [None]
  - CHOLESTASIS [None]
  - EOSINOPHILIA [None]
